FAERS Safety Report 18273547 (Version 2)
Quarter: 2020Q3

REPORT INFORMATION
  Report Type: Spontaneous
  Country: JP (occurrence: JP)
  Receive Date: 20200916
  Receipt Date: 20200928
  Transmission Date: 20201103
  Serious: No
  Sender: FDA-Public Use
  Company Number: JP-JNJFOC-20200846552

PATIENT

DRUGS (3)
  1. DUROTEP [Suspect]
     Active Substance: FENTANYL
  2. DUROTEP [Suspect]
     Active Substance: FENTANYL
     Indication: PRODUCT USED FOR UNKNOWN INDICATION
     Route: 062
  3. DUROTEP [Suspect]
     Active Substance: FENTANYL

REACTIONS (1)
  - Product adhesion issue [Unknown]
